FAERS Safety Report 18918097 (Version 1)
Quarter: 2021Q1

REPORT INFORMATION
  Report Type: Spontaneous
  Country: RU (occurrence: RU)
  Receive Date: 20210220
  Receipt Date: 20210220
  Transmission Date: 20210420
  Serious: Yes (Other)
  Sender: FDA-Public Use
  Company Number: RU-AMGEN-RUSSP2021025346

PATIENT
  Sex: Male

DRUGS (7)
  1. TREOSULFAN [Concomitant]
     Active Substance: TREOSULFAN
     Indication: PROPHYLAXIS
  2. THIOTEPA. [Concomitant]
     Active Substance: THIOTEPA
     Indication: PROPHYLAXIS
  3. BLINATUMOMAB [Suspect]
     Active Substance: BLINATUMOMAB
     Indication: PRECURSOR B-LYMPHOBLASTIC LYMPHOMA
     Dosage: UNK
     Route: 065
  4. FLUDARABINE [Concomitant]
     Active Substance: FLUDARABINE PHOSPHATE
     Indication: PROPHYLAXIS
  5. SIROLIMUS. [Concomitant]
     Active Substance: SIROLIMUS
     Dosage: UNK
  6. TACROLIMUS. [Concomitant]
     Active Substance: TACROLIMUS
  7. CYCLOPHOSPHAMIDE. [Concomitant]
     Active Substance: CYCLOPHOSPHAMIDE

REACTIONS (1)
  - Wernicke^s encephalopathy [Recovering/Resolving]
